FAERS Safety Report 10577777 (Version 1)
Quarter: 2014Q4

REPORT INFORMATION
  Report Type: Spontaneous
  Country: US (occurrence: US)
  Receive Date: 20141111
  Receipt Date: 20141111
  Transmission Date: 20150529
  Serious: No
  Sender: FDA-Public Use
  Company Number: US-MALLINCKRODT-T201401905

PATIENT
  Age: 53 Year
  Sex: Female

DRUGS (1)
  1. PENNSAID [Suspect]
     Active Substance: DICLOFENAC SODIUM
     Indication: NECK PAIN
     Dosage: UNK
     Route: 061
     Dates: start: 20140408, end: 20140408

REACTIONS (2)
  - Off label use [Recovered/Resolved]
  - Dermatitis allergic [Recovered/Resolved]

NARRATIVE: CASE EVENT DATE: 20140408
